FAERS Safety Report 10066811 (Version 1)
Quarter: 2014Q2

REPORT INFORMATION
  Report Type: Spontaneous
  Country: US (occurrence: US)
  Receive Date: 20140408
  Receipt Date: 20140408
  Transmission Date: 20141212
  Serious: No
  Sender: FDA-Public Use
  Company Number: US-009507513-1404USA003512

PATIENT
  Sex: Female

DRUGS (2)
  1. COZAAR [Suspect]
     Route: 048
  2. LOSARTAN POTASSIUM [Suspect]
     Route: 048

REACTIONS (3)
  - Blood pressure increased [Unknown]
  - Drug ineffective [Unknown]
  - Incorrect product storage [Unknown]
